FAERS Safety Report 7368550-6 (Version None)
Quarter: 2011Q1

REPORT INFORMATION
  Report Type: 
  Country: None (occurrence: None)
  Receive Date: 20110317
  Receipt Date: 20110317
  Transmission Date: 20110831
  Serious: Yes (Death)
  Sender: FDA-Public Use
  Company Number: None

PATIENT
  Sex: Male
  Weight: 68.0396 kg

DRUGS (2)
  1. LORAZEPAM [Suspect]
     Indication: ANXIETY
     Dosage: 1 MG TID ORAL
     Route: 048
     Dates: start: 20090910, end: 20090912
  2. CITALOPRAM HYDROBROMIDE [Suspect]
     Indication: DEPRESSION
     Dosage: 20 MG QD ORAL
     Route: 048
     Dates: start: 20090910, end: 20090912

REACTIONS (2)
  - DROWNING [None]
  - COMPLETED SUICIDE [None]
